FAERS Safety Report 20600327 (Version 3)
Quarter: 2022Q3

REPORT INFORMATION
  Report Type: Report from Study
  Country: CA (occurrence: CA)
  Receive Date: 20220316
  Receipt Date: 20220714
  Transmission Date: 20221027
  Serious: Yes (Other)
  Sender: FDA-Public Use
  Company Number: CA-BRISTOL-MYERS SQUIBB COMPANY-BMS-2021-123151

PATIENT
  Age: 71 Year
  Sex: Female
  Weight: 63.00 kg

DRUGS (4)
  1. ABATACEPT [Suspect]
     Active Substance: ABATACEPT
     Indication: Rheumatoid arthritis
     Dosage: 750 MILLIGRAM, Q4WK
     Route: 042
     Dates: start: 20170317
  2. ABATACEPT [Suspect]
     Active Substance: ABATACEPT
     Dosage: UNK
     Route: 065
     Dates: start: 20211020
  3. ABATACEPT [Suspect]
     Active Substance: ABATACEPT
     Dosage: 750 MILLIGRAM
     Route: 065
     Dates: start: 20220311
  4. ABATACEPT [Suspect]
     Active Substance: ABATACEPT
     Dosage: 4WEEKS
     Route: 042

REACTIONS (5)
  - Arthropathy [Unknown]
  - Incorrect product administration duration [Not Recovered/Not Resolved]
  - Blood pressure systolic increased [Recovered/Resolved]
  - Anxiety [Unknown]
  - Intentional product use issue [Not Recovered/Not Resolved]

NARRATIVE: CASE EVENT DATE: 20220609
